FAERS Safety Report 21570921 (Version 2)
Quarter: 2022Q4

REPORT INFORMATION
  Report Type: Report from Study
  Country: FR (occurrence: FR)
  Receive Date: 20221109
  Receipt Date: 20221116
  Transmission Date: 20230113
  Serious: Yes (Death, Hospitalization)
  Sender: FDA-Public Use
  Company Number: FR-ABBVIE-4192672

PATIENT
  Age: 68 Year
  Sex: Female

DRUGS (3)
  1. CARBIDOPA\LEVODOPA [Suspect]
     Active Substance: CARBIDOPA\LEVODOPA
     Indication: Parkinson^s disease
     Dosage: CONTINUOUS FLOW RATE FROM 7 A.M. TILL 12 P.M.: 4 ML/H, FROM 12 P.M. TILL 7 P.M.: 3.8 ML/H
     Route: 050
     Dates: start: 20170901, end: 202210
  2. CARBIDOPA\LEVODOPA [Suspect]
     Active Substance: CARBIDOPA\LEVODOPA
     Dosage: CONTINUOUS FLOW RATE FROM 7 A.M. TILL 12 P.M.: 4 ML/H, FROM 12 P.M. TILL 7 P.M.: 3.8 ML/H
     Route: 050
     Dates: start: 20170901, end: 202210
  3. SINEMET [Suspect]
     Active Substance: CARBIDOPA\LEVODOPA
     Indication: Parkinson^s disease
     Route: 048
     Dates: start: 202210

REACTIONS (2)
  - Loss of consciousness [Fatal]
  - Cardio-respiratory arrest [Fatal]

NARRATIVE: CASE EVENT DATE: 20221103
